FAERS Safety Report 25510092 (Version 1)
Quarter: 2025Q3

REPORT INFORMATION
  Report Type: Spontaneous
  Country: US (occurrence: None)
  Receive Date: 20250702
  Receipt Date: 20250702
  Transmission Date: 20251020
  Serious: Yes (Other)
  Sender: FDA-CTU
  Company Number: None

PATIENT
  Age: 64 Year
  Sex: Female
  Weight: 54 kg

DRUGS (7)
  1. ZICAM COLD REMEDY MEDICATED NASAL SWABS [Suspect]
     Active Substance: HOMEOPATHICS
     Indication: Nasopharyngitis
     Dosage: OTHER STRENGTH : 4X/4X;?OTHER QUANTITY : 1 SWAB;?FREQUENCY : 3 TIMES A DAY;?OTHER ROUTE : INTRANASAL;?
     Route: 050
  2. ZOLOFT [Concomitant]
     Active Substance: SERTRALINE HYDROCHLORIDE
  3. TRELEGY ELLIPTA [Concomitant]
     Active Substance: FLUTICASONE FUROATE\UMECLIDINIUM BROMIDE\VILANTEROL TRIFENATATE
  4. Azel/fluc [Concomitant]
  5. VITAMIN D NOS [Concomitant]
     Active Substance: CHOLECALCIFEROL\ERGOCALCIFEROL
  6. MAGNESIUM [Concomitant]
     Active Substance: MAGNESIUM
  7. Gi Fortify [Concomitant]

REACTIONS (2)
  - Sinusitis [None]
  - Staphylococcal infection [None]

NARRATIVE: CASE EVENT DATE: 20250604
